FAERS Safety Report 23387116 (Version 3)
Quarter: 2024Q1

REPORT INFORMATION
  Report Type: Spontaneous
  Country: DK (occurrence: DK)
  Receive Date: 20240110
  Receipt Date: 20240320
  Transmission Date: 20240410
  Serious: Yes (Life-Threatening, Hospitalization, Other)
  Sender: FDA-Public Use
  Company Number: DK-JNJFOC-20240103508

PATIENT
  Age: 2 Day
  Sex: Male
  Weight: 3.484 kg

DRUGS (3)
  1. STELARA [Suspect]
     Active Substance: USTEKINUMAB
     Indication: Crohn^s disease
     Dosage: AT GESTATIONAL WEEK 20, INTRAVENOUS USTEKINUMAB 390 MG WAS INITIATED FOR FLARING WITH PROMP EFFECT
     Route: 064
  2. STELARA [Suspect]
     Active Substance: USTEKINUMAB
     Dosage: 90 MG WAS ADMINISTERED AT GESTATIONAL WEEKS 28 AND 34
     Route: 064
  3. AZATHIOPRINE [Suspect]
     Active Substance: AZATHIOPRINE
     Indication: Crohn^s disease
     Dosage: 150 MG, QD
     Route: 064

REACTIONS (5)
  - Sepsis neonatal [Unknown]
  - Lower respiratory tract infection bacterial [Recovering/Resolving]
  - Escherichia infection [Not Recovered/Not Resolved]
  - Pleural infection bacterial [Not Recovered/Not Resolved]
  - Pneumonia [Recovering/Resolving]
